FAERS Safety Report 10979434 (Version 2)
Quarter: 2015Q2

REPORT INFORMATION
  Report Type: Spontaneous
  Country: FR (occurrence: FR)
  Receive Date: 20150402
  Receipt Date: 20150505
  Transmission Date: 20150821
  Serious: Yes (Hospitalization)
  Sender: FDA-Public Use
  Company Number: FR-PFIZER INC-2015109906

PATIENT
  Age: 69 Year
  Sex: Female

DRUGS (11)
  1. PAROXETINE HYDROCHLORIDE. [Suspect]
     Active Substance: PAROXETINE HYDROCHLORIDE
     Dosage: 20 MG, UNK
     Route: 048
  2. EXFORGE [Concomitant]
     Active Substance: AMLODIPINE BESYLATE\VALSARTAN
  3. CRESTOR 5 [Concomitant]
     Dosage: UNK
  4. SERESTA [Concomitant]
     Active Substance: OXAZEPAM
     Dosage: 10
  5. LAMOTRIGINE. [Concomitant]
     Active Substance: LAMOTRIGINE
     Dosage: 100
  6. DOLIPRANE [Concomitant]
     Active Substance: ACETAMINOPHEN
     Dosage: 1000
  7. ESOMEPRAZOLE [Concomitant]
     Active Substance: ESOMEPRAZOLE
     Dosage: 20
  8. LYRICA [Suspect]
     Active Substance: PREGABALIN
     Dosage: 75 MG, UNK
     Route: 048
  9. KARDEGIC [Suspect]
     Active Substance: ASPIRIN LYSINE
     Indication: PHLEBITIS
     Dosage: 75 MG, 1X/DAY
     Route: 048
     Dates: start: 2013
  10. MONOCRIXO [Suspect]
     Active Substance: TRAMADOL HYDROCHLORIDE
     Dosage: 100 MG, UNK
     Route: 048
  11. NOCTAMIDE [Concomitant]
     Active Substance: LORMETAZEPAM

REACTIONS (1)
  - Cerebral haematoma [Recovered/Resolved]

NARRATIVE: CASE EVENT DATE: 20150301
